FAERS Safety Report 22298601 (Version 1)
Quarter: 2023Q2

REPORT INFORMATION
  Report Type: Spontaneous
  Country: US (occurrence: US)
  Receive Date: 20230509
  Receipt Date: 20230509
  Transmission Date: 20230722
  Serious: Yes (Life-Threatening, Hospitalization)
  Sender: FDA-Public Use
  Company Number: US-BAYER-2023A062738

PATIENT
  Age: 29 Year
  Sex: Female

DRUGS (2)
  1. ASPIRIN [Suspect]
     Active Substance: ASPIRIN
     Dosage: 500 DF, ONCE
     Route: 048
  2. TRAZODONE [Suspect]
     Active Substance: TRAZODONE HYDROCHLORIDE
     Dosage: 300 DF, ONCE
     Route: 048

REACTIONS (4)
  - Seizure [None]
  - Toxicity to various agents [Recovered/Resolved]
  - Intentional overdose [None]
  - Wrong technique in product usage process [None]
